FAERS Safety Report 7930268-6 (Version None)
Quarter: 2011Q4

REPORT INFORMATION
  Report Type: 
  Country: None (occurrence: None)
  Receive Date: 20111121
  Receipt Date: 20111111
  Transmission Date: 20120403
  Serious: Yes (Hospitalization, Other)
  Sender: FDA-Public Use
  Company Number: US-ASTRAZENECA-2011SE68423

PATIENT
  Age: 50 Year
  Sex: Female

DRUGS (6)
  1. TOPROL-XL [Suspect]
     Route: 048
  2. HMG COA REDUCTASE INHIBITORS [Concomitant]
  3. CLOPIDOGREL [Suspect]
     Indication: CORONARY ARTERY DISEASE
     Route: 048
     Dates: start: 20110425, end: 20110425
  4. ASPIRIN [Suspect]
     Indication: CORONARY ARTERY DISEASE
     Route: 048
     Dates: start: 20110425, end: 20110425
  5. BETA BLOCKING AGENTS [Concomitant]
  6. CLOPIDOGREL [Suspect]
     Route: 048
     Dates: start: 20110426, end: 20110601

REACTIONS (9)
  - ANGINA PECTORIS [None]
  - CORONARY ARTERY STENOSIS [None]
  - DYSPNOEA [None]
  - ELECTROCARDIOGRAM ST-T SEGMENT ABNORMAL [None]
  - SINUS BRADYCARDIA [None]
  - CARDIAC PSEUDOANEURYSM [None]
  - CHEST DISCOMFORT [None]
  - MYOCARDIAL ISCHAEMIA [None]
  - URTICARIA [None]
